FAERS Safety Report 12451389 (Version 1)
Quarter: 2016Q2

REPORT INFORMATION
  Report Type: Spontaneous
  Country: GB (occurrence: GB)
  Receive Date: 20160609
  Receipt Date: 20160609
  Transmission Date: 20160815
  Serious: Yes (Hospitalization, Other)
  Sender: FDA-Public Use
  Company Number: GB-PFIZER INC-2016290518

PATIENT
  Age: 65 Year
  Sex: Male
  Weight: 82 kg

DRUGS (11)
  1. COLESTYRAMINE [Concomitant]
     Active Substance: CHOLESTYRAMINE
     Dosage: UNK (TAKE 1 - 2 SACHETS DAILY)
     Dates: start: 20160428
  2. DIHYDROCODEINE [Concomitant]
     Active Substance: DIHYDROCODEINE
     Dosage: 1 OR 2 4-6 HOURLY AS REQUIRED
     Dates: start: 20160104
  3. OMEPRAZOLE. [Concomitant]
     Active Substance: OMEPRAZOLE
     Dosage: 1 DF, 1X/DAY
     Dates: start: 20140319
  4. NAPROXEN. [Concomitant]
     Active Substance: NAPROXEN
     Indication: PAIN
     Dosage: 1 DF, 2X/DAY. ONLY IF NEEDED.
     Dates: start: 20160104
  5. DOXYCYCLINE MONOHYDRATE [Suspect]
     Active Substance: DOXYCYCLINE
     Indication: LOWER RESPIRATORY TRACT INFECTION
     Dosage: UNK
     Dates: start: 20160418
  6. AMOXICILLIN. [Suspect]
     Active Substance: AMOXICILLIN
     Indication: LOWER RESPIRATORY TRACT INFECTION
     Dosage: 1 DF, 3X/DAY
     Dates: start: 20160329, end: 20160405
  7. CO-AMOXICLAV /00756801/ [Suspect]
     Active Substance: AMOXICILLIN\CLAVULANIC ACID
     Indication: LOWER RESPIRATORY TRACT INFECTION
     Dosage: 1 DF, 3X/DAY
     Dates: start: 20160404, end: 20160411
  8. CHLORPHENAMINE [Concomitant]
     Active Substance: CHLORPHENIRAMINE MALEATE
     Dosage: 1 DF, 3X/DAY
     Dates: start: 20160418, end: 20160516
  9. METOCLOPRAMIDE. [Concomitant]
     Active Substance: METOCLOPRAMIDE
     Dosage: 1 DF, 3X/DAY
     Dates: start: 20160418, end: 20160502
  10. PREDNISOLONE. [Concomitant]
     Active Substance: PREDNISOLONE
     Dosage: 30 MG, 1X/DAY
     Dates: start: 20160429, end: 20160504
  11. SALBUTAMOL [Concomitant]
     Active Substance: ALBUTEROL
     Dosage: 2 DF, 4X/DAY. AS DIRECTED.
     Dates: start: 20160415, end: 20160515

REACTIONS (7)
  - Cough [Unknown]
  - Cholestasis [Unknown]
  - Jaundice [Unknown]
  - Hepatic enzyme abnormal [Unknown]
  - Pruritus generalised [Unknown]
  - Blood bilirubin increased [Unknown]
  - Crepitations [Unknown]

NARRATIVE: CASE EVENT DATE: 20160525
